FAERS Safety Report 8813369 (Version 1)
Quarter: 2012Q4

REPORT INFORMATION
  Report Type: 
  Country: US (occurrence: US)
  Receive Date: 20120927
  Receipt Date: 20120927
  Transmission Date: 20130627
  Serious: No
  Sender: FDA-Public Use
  Company Number: US-AMGEN-USASP2012046799

PATIENT
  Sex: Female

DRUGS (4)
  1. PROLIA [Suspect]
     Indication: OSTEOPOROSIS POSTMENOPAUSAL
     Dosage: UNK UNK, q6mo
     Dates: start: 20120709
  2. METOPROLOL [Concomitant]
     Dosage: UNK
  3. VALTREX [Concomitant]
     Dosage: UNK
  4. VITAMINS                           /90003601/ [Concomitant]

REACTIONS (7)
  - Joint swelling [Not Recovered/Not Resolved]
  - Influenza like illness [Recovered/Resolved]
  - Rosacea [Not Recovered/Not Resolved]
  - Abnormal sensation in eye [Recovered/Resolved]
  - Back pain [Not Recovered/Not Resolved]
  - Arthralgia [Not Recovered/Not Resolved]
  - Pain in extremity [Not Recovered/Not Resolved]
